FAERS Safety Report 13661052 (Version 2)
Quarter: 2017Q2

REPORT INFORMATION
  Report Type: Spontaneous
  Country: BR (occurrence: BR)
  Receive Date: 20170616
  Receipt Date: 20170623
  Transmission Date: 20170830
  Serious: Yes (Hospitalization, Other)
  Sender: FDA-Public Use
  Company Number: BR-JNJFOC-20170609978

PATIENT
  Sex: Female
  Weight: 85 kg

DRUGS (2)
  1. HALDOL [Suspect]
     Active Substance: HALOPERIDOL
     Indication: PARKINSON^S DISEASE
     Route: 048
     Dates: start: 2007
  2. HALDOL [Suspect]
     Active Substance: HALOPERIDOL
     Indication: CHOREA
     Route: 048
     Dates: start: 2007

REACTIONS (5)
  - Off label use [Unknown]
  - Chorea [Unknown]
  - Drug dose omission [Unknown]
  - Contraindicated product administered [Unknown]
  - Product availability issue [Unknown]

NARRATIVE: CASE EVENT DATE: 2007
